FAERS Safety Report 6301850-7 (Version None)
Quarter: 2009Q3

REPORT INFORMATION
  Report Type: 
  Country: None (occurrence: None)
  Receive Date: 20090807
  Receipt Date: 20090728
  Transmission Date: 20100115
  Serious: Yes (Hospitalization, Other)
  Sender: FDA-Public Use
  Company Number: DE-ABBOTT-09P-062-0588077-00

PATIENT
  Age: 68 Year
  Sex: Female

DRUGS (2)
  1. HUMIRA [Suspect]
     Indication: RHEUMATOID ARTHRITIS
     Route: 058
     Dates: start: 20040701, end: 20080401
  2. HUMIRA [Suspect]
     Dates: start: 20080501

REACTIONS (4)
  - BACK PAIN [None]
  - MOBILITY DECREASED [None]
  - PNEUMONIA [None]
  - SPINAL FRACTURE [None]
